FAERS Safety Report 16819167 (Version 17)
Quarter: 2020Q1

REPORT INFORMATION
  Report Type: Spontaneous
  Country: JP (occurrence: JP)
  Receive Date: 20190917
  Receipt Date: 20200331
  Transmission Date: 20200409
  Serious: Yes (Other)
  Sender: FDA-Public Use
  Company Number: JP-PFIZER INC-2019391826

PATIENT
  Sex: Male

DRUGS (37)
  1. AMLODIN [Suspect]
     Active Substance: AMLODIPINE BESYLATE
     Indication: HYPERTENSION
     Dosage: 20 MG, DAILY
     Route: 048
     Dates: start: 20190904, end: 20190904
  2. AKINETON [Suspect]
     Active Substance: BIPERIDEN HYDROCHLORIDE
     Indication: SCHIZOPHRENIA
     Dosage: 0.5 MG, AS NEEDED (UP TO 4 TIMES/DAY)
     Route: 048
     Dates: start: 20190810
  3. AKINETON [Suspect]
     Active Substance: BIPERIDEN HYDROCHLORIDE
     Dosage: UNK UNK, DAILY (0.5 MG TO 7 MG, DAILY)
     Route: 048
  4. LANDSEN [Suspect]
     Active Substance: CLONAZEPAM
     Dosage: 4 MG, DAILY
     Route: 048
  5. RISPERDAL [Suspect]
     Active Substance: RISPERIDONE
     Indication: AFFECTIVE DISORDER
     Dosage: 0.5 DF, AS NEEDED (UP TO 4 TIMES/DAY)
     Route: 048
     Dates: start: 20190810
  6. RISPERDAL [Suspect]
     Active Substance: RISPERIDONE
     Dosage: 4 MG, 3X/DAY
     Route: 048
  7. LITHIUM CARBONATE. [Concomitant]
     Active Substance: LITHIUM CARBONATE
     Dosage: UNK
  8. MEILAX [Concomitant]
     Active Substance: ETHYL LOFLAZEPATE
     Dosage: UNK
  9. CYMBALTA [Concomitant]
     Active Substance: DULOXETINE HYDROCHLORIDE
     Dosage: UNK
  10. AKINETON [Suspect]
     Active Substance: BIPERIDEN HYDROCHLORIDE
     Dosage: UNK
     Route: 048
  11. LANDSEN [Suspect]
     Active Substance: CLONAZEPAM
     Dosage: 1.5 MG, DAILY
     Route: 048
  12. RISPERDAL [Suspect]
     Active Substance: RISPERIDONE
     Dosage: 2 MG, DAILY
     Route: 048
  13. LULLAN [Suspect]
     Active Substance: PEROSPIRONE HYDROCHLORIDE
     Indication: PSYCHIATRIC SYMPTOM
     Dosage: 4 MG, AS NEEDED (TWICE DAILY) (MAXIMUM DOSE WAS 8MG /DAY.)
     Route: 048
  14. DIOVAN [Concomitant]
     Active Substance: VALSARTAN
     Indication: HYPERTENSION
     Dosage: 160 MG, DAILY (2 TABLETS OF DIOVAN 80 MG)
     Route: 048
     Dates: start: 20190810
  15. WYPAX [Suspect]
     Active Substance: LORAZEPAM
     Indication: AFFECTIVE DISORDER
     Dosage: UNK
     Route: 048
  16. METGLUCO [Suspect]
     Active Substance: METFORMIN HYDROCHLORIDE
     Dosage: 2000 MG, DAILY
     Route: 048
     Dates: start: 2018
  17. METGLUCO [Suspect]
     Active Substance: METFORMIN HYDROCHLORIDE
     Dosage: UNK
     Route: 048
     Dates: start: 20190904
  18. AMLODIN [Suspect]
     Active Substance: AMLODIPINE BESYLATE
     Indication: SCHIZOPHRENIA
     Dosage: 10 MG, DAILY
     Route: 048
     Dates: start: 20190810
  19. RISPERDAL [Suspect]
     Active Substance: RISPERIDONE
     Dosage: UNK
     Route: 048
     Dates: start: 20190904
  20. AKINETON [Suspect]
     Active Substance: BIPERIDEN HYDROCHLORIDE
     Dosage: 4 MG, SINGLE (0.5 MG 8 TIMES/DAY)
     Route: 048
  21. BETANIS [Concomitant]
     Active Substance: MIRABEGRON
     Indication: HYPERTONIC BLADDER
     Dosage: UNK
  22. BELSOMRA [Concomitant]
     Active Substance: SUVOREXANT
     Dosage: UNK
  23. METGLUCO [Suspect]
     Active Substance: METFORMIN HYDROCHLORIDE
     Dosage: 1000 MG, DAILY (2 TABLETS OF METGLUCO 500 MG)
     Dates: start: 20190810
  24. RISPERDAL [Suspect]
     Active Substance: RISPERIDONE
     Dosage: 6 MG, DAILY
     Route: 048
  25. RISPERDAL [Suspect]
     Active Substance: RISPERIDONE
     Dosage: 12 MG, UNK
     Route: 048
  26. RISPERDAL [Suspect]
     Active Substance: RISPERIDONE
     Dosage: UNK 12 TIMES DAILY
     Route: 048
     Dates: start: 2019
  27. EQUA [Concomitant]
     Active Substance: VILDAGLIPTIN
     Dosage: 100 MG, DAILY
     Dates: start: 2018, end: 20190602
  28. AMLODIN [Suspect]
     Active Substance: AMLODIPINE BESYLATE
     Dosage: 20 MG, DAILY
     Route: 048
     Dates: start: 20190910, end: 20190910
  29. AKINETON [Suspect]
     Active Substance: BIPERIDEN HYDROCHLORIDE
     Dosage: 10 MG, DAILY
     Route: 048
  30. LANDSEN [Suspect]
     Active Substance: CLONAZEPAM
     Indication: AFFECTIVE DISORDER
     Dosage: 0.5 MG, DAILY
     Route: 048
  31. LANDSEN [Suspect]
     Active Substance: CLONAZEPAM
     Dosage: 20 DF, SINGLE
     Route: 048
     Dates: start: 20191017
  32. METGLUCO [Suspect]
     Active Substance: METFORMIN HYDROCHLORIDE
     Indication: DIABETES MELLITUS
     Dosage: 1000 MG, DAILY
     Route: 048
     Dates: start: 201810
  33. METGLUCO [Suspect]
     Active Substance: METFORMIN HYDROCHLORIDE
     Dosage: 1500 MG, DAILY
     Route: 048
     Dates: start: 20190602
  34. LULLAN [Suspect]
     Active Substance: PEROSPIRONE HYDROCHLORIDE
     Indication: DIABETES MELLITUS
     Dosage: 4 MG, 3X/DAY
     Route: 048
     Dates: start: 2019
  35. LULLAN [Suspect]
     Active Substance: PEROSPIRONE HYDROCHLORIDE
     Indication: ANXIETY DISORDER
     Dosage: 4 MG, DAILY
     Route: 048
  36. DIOVAN [Concomitant]
     Active Substance: VALSARTAN
     Dosage: UNK
     Route: 048
     Dates: start: 20190904
  37. RIVOTRIL [Concomitant]
     Active Substance: CLONAZEPAM
     Dosage: UNK
     Route: 048

REACTIONS (21)
  - Dyskinesia [Unknown]
  - Product administration error [Unknown]
  - Tension [Unknown]
  - Overdose [Unknown]
  - Headache [Unknown]
  - Apathy [Not Recovered/Not Resolved]
  - Irritability [Unknown]
  - Product use in unapproved indication [Unknown]
  - Inappropriate schedule of product administration [Unknown]
  - Akathisia [Unknown]
  - Parkinsonian gait [Unknown]
  - Dependence [Unknown]
  - Dizziness postural [Unknown]
  - Bradykinesia [Unknown]
  - Nausea [Unknown]
  - Dysarthria [Unknown]
  - Off label use [Unknown]
  - Judgement impaired [Unknown]
  - Anxiety [Unknown]
  - Glycosylated haemoglobin increased [Unknown]
  - Stupor [Unknown]

NARRATIVE: CASE EVENT DATE: 2019
